FAERS Safety Report 8427051-4 (Version None)
Quarter: 2012Q2

REPORT INFORMATION
  Report Type: 
  Country: None (occurrence: None)
  Receive Date: 20120611
  Receipt Date: 20120530
  Transmission Date: 20120825
  Serious: Yes (Other)
  Sender: FDA-Public Use
  Company Number: JP-ROCHE-1074564

PATIENT
  Age: 67 Year
  Sex: Female

DRUGS (8)
  1. FLUOROURACIL [Suspect]
     Dosage: THREE COURSES
     Route: 041
  2. EPIRUBICIN HYDROCHLORIDE [Suspect]
     Dosage: THREE COURSES
     Route: 041
  3. HERCEPTIN [Suspect]
     Indication: BREAST CANCER
     Dosage: 18 TIME ADMINISTERING
     Route: 041
  4. EPIRUBICIN HYDROCHLORIDE [Suspect]
     Indication: BREAST CANCER
     Dosage: ONE COURSE
     Route: 041
  5. CYCLOPHOSPHAMIDE [Suspect]
     Indication: BREAST CANCER
     Dosage: ONE COURSE
     Route: 041
  6. DOCETAXEL [Suspect]
     Indication: BREAST CANCER
     Dosage: FOUR COURSES
     Route: 041
  7. FLUOROURACIL [Suspect]
     Indication: BREAST CANCER
     Dosage: ONE COURSE
     Route: 041
  8. CYCLOPHOSPHAMIDE [Suspect]
     Dosage: THREE COURSES
     Route: 041

REACTIONS (1)
  - ACUTE MYELOID LEUKAEMIA [None]
